FAERS Safety Report 9314957 (Version 1)
Quarter: 2013Q2

REPORT INFORMATION
  Report Type: Spontaneous
  Country: US (occurrence: US)
  Receive Date: 20130529
  Receipt Date: 20130529
  Transmission Date: 20140414
  Serious: Yes (Hospitalization)
  Sender: FDA-Public Use
  Company Number: US-GLAXOSMITHKLINE-A0785110A

PATIENT
  Age: 45 Year
  Sex: Female
  Weight: 80.9 kg

DRUGS (1)
  1. AVANDIA [Suspect]
     Indication: TYPE 2 DIABETES MELLITUS
     Dosage: 4MG TWICE PER DAY
     Route: 048
     Dates: start: 200406, end: 200506

REACTIONS (4)
  - Cerebrovascular accident [Unknown]
  - Hemiparesis [Unknown]
  - Pain [Unknown]
  - Amnesia [Unknown]
